FAERS Safety Report 5168804-8 (Version None)
Quarter: 2006Q4

REPORT INFORMATION
  Report Type: 
  Country: None (occurrence: None)
  Receive Date: 20061211
  Receipt Date: 20061129
  Transmission Date: 20070319
  Serious: Yes (Death, Hospitalization)
  Sender: FDA-Public Use
  Company Number: US-AMGEN-US201757

PATIENT
  Age: 82 Year
  Sex: Male

DRUGS (4)
  1. VECTIBIX [Suspect]
     Indication: COLORECTAL CANCER
     Route: 065
     Dates: start: 20061121
  2. ERBITUX [Concomitant]
     Route: 065
  3. XELODA [Concomitant]
     Route: 065
  4. UNSPECIFIED ANTIDIABETIC AGENT [Concomitant]
     Route: 048

REACTIONS (8)
  - ABDOMINAL PAIN [None]
  - BLOOD GLUCOSE DECREASED [None]
  - DEHYDRATION [None]
  - ELECTROLYTE IMBALANCE [None]
  - FAECALOMA [None]
  - NAUSEA [None]
  - RENAL FAILURE [None]
  - VOMITING [None]
